FAERS Safety Report 4902325-X (Version None)
Quarter: 2006Q1

REPORT INFORMATION
  Report Type: 
  Country: None (occurrence: None)
  Receive Date: 20060203
  Receipt Date: 20060203
  Transmission Date: 20060701
  Serious: No
  Sender: FDA-Public Use
  Company Number: None

PATIENT
  Sex: Male
  Weight: 97.5234 kg

DRUGS (1)
  1. CIPROFLOXACIN [Suspect]
     Indication: PROSTATITIS
     Dosage: 500 MG   12HR   PO
     Route: 048
     Dates: start: 20060116, end: 20060127

REACTIONS (7)
  - ARTHRALGIA [None]
  - BACK PAIN [None]
  - MUSCLE TIGHTNESS [None]
  - MUSCULOSKELETAL STIFFNESS [None]
  - NECK PAIN [None]
  - PAIN IN EXTREMITY [None]
  - PARAESTHESIA [None]
